FAERS Safety Report 25897621 (Version 1)
Quarter: 2025Q4

REPORT INFORMATION
  Report Type: Report from Study
  Country: IN (occurrence: IN)
  Receive Date: 20251008
  Receipt Date: 20251008
  Transmission Date: 20260118
  Serious: Yes (Death)
  Sender: DAIICHI
  Company Number: IN-AstraZeneca-CH-00964318A

PATIENT
  Age: 56 Year
  Sex: Female
  Weight: 55 kg

DRUGS (1)
  1. ENHERTU [Suspect]
     Active Substance: FAM-TRASTUZUMAB DERUXTECAN-NXKI
     Indication: HER2 low breast cancer
     Dosage: 100 MG, ONCE EVERY 3 WK
     Route: 041

REACTIONS (4)
  - Oxygen saturation decreased [Fatal]
  - Pneumonia [Fatal]
  - Decreased appetite [Fatal]
  - Vomiting [Fatal]
